FAERS Safety Report 11580676 (Version 2)
Quarter: 2015Q4

REPORT INFORMATION
  Report Type: Report from Study
  Country: BR (occurrence: BR)
  Receive Date: 20150930
  Receipt Date: 20151013
  Transmission Date: 20160304
  Serious: Yes (Other)
  Sender: FDA-Public Use
  Company Number: PHHY2015BR117385

PATIENT
  Sex: Female
  Weight: 78 kg

DRUGS (1)
  1. EXELON PATCH [Suspect]
     Active Substance: RIVASTIGMINE
     Indication: MEMORY IMPAIRMENT
     Dosage: PATCH 5 (CM2)
     Route: 062

REACTIONS (3)
  - Product use issue [Unknown]
  - Central nervous system lesion [Unknown]
  - DiGeorge^s syndrome [Not Recovered/Not Resolved]
